FAERS Safety Report 17584667 (Version 2)
Quarter: 2020Q2

REPORT INFORMATION
  Report Type: Spontaneous
  Country: KR (occurrence: KR)
  Receive Date: 20200326
  Receipt Date: 20200413
  Transmission Date: 20200713
  Serious: Yes (Hospitalization, Other)
  Sender: FDA-Public Use
  Company Number: NVSC2020KR084577

PATIENT
  Age: 80 Year
  Sex: Male

DRUGS (1)
  1. EXELON [Suspect]
     Active Substance: RIVASTIGMINE TARTRATE
     Indication: DEMENTIA
     Dosage: 30 PATCH
     Route: 062
     Dates: start: 202003

REACTIONS (5)
  - Wrong technique in product usage process [Unknown]
  - Memory impairment [Unknown]
  - Altered state of consciousness [Unknown]
  - Cognitive disorder [Unknown]
  - Seizure [Unknown]
